FAERS Safety Report 8971329 (Version 1)
Quarter: 2012Q4

REPORT INFORMATION
  Report Type: 
  Country: US (occurrence: US)
  Receive Date: 20121218
  Receipt Date: 20121218
  Transmission Date: 20130627
  Serious: Yes (Other)
  Sender: FDA-Public Use
  Company Number: US-ELI_LILLY_AND_COMPANY-US201212002842

PATIENT
  Age: 59 Year
  Sex: Female

DRUGS (2)
  1. EVISTA [Suspect]
     Indication: BREAST CANCER IN SITU
     Dosage: 60 mg, qd
     Dates: start: 200808, end: 20120517
  2. ENALAPRIL [Concomitant]
     Dosage: UNK, unknown

REACTIONS (1)
  - Uterine cancer [Unknown]
